FAERS Safety Report 25180342 (Version 1)
Quarter: 2025Q2

REPORT INFORMATION
  Report Type: Spontaneous
  Country: US (occurrence: US)
  Receive Date: 20250409
  Receipt Date: 20250409
  Transmission Date: 20250717
  Serious: No
  Sender: EAGLE
  Company Number: US-EAGLE PHARMACEUTICALS, INC.-US-2024EAG000041

PATIENT

DRUGS (2)
  1. BARHEMSYS [Suspect]
     Active Substance: AMISULPRIDE
     Indication: Procedural nausea
     Route: 042
     Dates: start: 202401
  2. BARHEMSYS [Suspect]
     Active Substance: AMISULPRIDE
     Indication: Procedural vomiting

REACTIONS (1)
  - Injection site pain [Unknown]

NARRATIVE: CASE EVENT DATE: 20240101
